FAERS Safety Report 4409293-8 (Version None)
Quarter: 2004Q3

REPORT INFORMATION
  Report Type: 
  Country: None (occurrence: None)
  Receive Date: 20040722
  Receipt Date: 20040707
  Transmission Date: 20050211
  Serious: Yes (Hospitalization)
  Sender: FDA-Public Use
  Company Number: 199245

PATIENT
  Age: 59 Year
  Sex: Female
  Weight: 80.2867 kg

DRUGS (11)
  1. AVONEX [Suspect]
     Indication: MULTIPLE SCLEROSIS
     Dosage: 30 MCG QW IM
     Route: 030
  2. ZYPREXA [Concomitant]
  3. PRILOSEC [Concomitant]
  4. ATIVAN [Concomitant]
  5. PROVIGIL [Concomitant]
  6. ESTRADERM [Concomitant]
  7. FIORICET [Concomitant]
  8. SINEMET [Concomitant]
  9. ELDEPRYL [Concomitant]
  10. REQUIP [Concomitant]
  11. XANAX [Concomitant]

REACTIONS (3)
  - CHOLECYSTITIS CHRONIC [None]
  - DIVERTICULITIS [None]
  - LOBAR PNEUMONIA [None]
